FAERS Safety Report 14651348 (Version 1)
Quarter: 2018Q1

REPORT INFORMATION
  Report Type: Spontaneous
  Country: US (occurrence: US)
  Receive Date: 20180316
  Receipt Date: 20180316
  Transmission Date: 20180509
  Serious: Yes (Other)
  Sender: FDA-Public Use
  Company Number: None

PATIENT
  Age: 29 Year
  Sex: Female
  Weight: 95.85 kg

DRUGS (1)
  1. TIGER BALM ULTRA STRENGTH [Suspect]
     Active Substance: CAMPHOR (SYNTHETIC)\MENTHOL
     Indication: MYALGIA
     Dosage: ?          QUANTITY:1 TEASPOON(S);OTHER FREQUENCY:ONE TIME;?
     Route: 061
     Dates: start: 20180313, end: 20180313

REACTIONS (1)
  - Application site hypersensitivity [None]

NARRATIVE: CASE EVENT DATE: 20180315
